FAERS Safety Report 18686252 (Version 1)
Quarter: 2020Q4

REPORT INFORMATION
  Report Type: Spontaneous
  Country: IT (occurrence: IT)
  Receive Date: 20201231
  Receipt Date: 20201231
  Transmission Date: 20210114
  Serious: Yes (Other)
  Sender: FDA-Public Use
  Company Number: IT-SA-2020SA374903

PATIENT

DRUGS (2)
  1. STILNOX [Suspect]
     Active Substance: ZOLPIDEM TARTRATE
     Indication: INTENTIONAL SELF-INJURY
     Dosage: 6 DF, TOTAL
     Route: 048
     Dates: start: 20201017, end: 20201017
  2. DENIBAN [Concomitant]
     Active Substance: AMISULPRIDE
     Dosage: 50 MG, QD
     Route: 065

REACTIONS (3)
  - Bradyphrenia [Recovering/Resolving]
  - Substance abuse [Recovering/Resolving]
  - Sopor [Recovering/Resolving]

NARRATIVE: CASE EVENT DATE: 20201017
